FAERS Safety Report 6810532-4 (Version None)
Quarter: 2010Q2

REPORT INFORMATION
  Report Type: 
  Country: None (occurrence: None)
  Receive Date: 20100630
  Receipt Date: 20100618
  Transmission Date: 20101027
  Serious: Yes (Life-Threatening, Hospitalization)
  Sender: FDA-Public Use
  Company Number: DE-MYLANLABS-2009S1004776

PATIENT
  Age: 78 Year
  Sex: Female
  Weight: 80 kg

DRUGS (9)
  1. SPIRONOLACTONE [Suspect]
     Indication: HYPERTENSION
     Route: 048
     Dates: start: 20080730, end: 20080818
  2. DOXAZOSIN MESYLATE [Interacting]
     Indication: HYPERTENSION
     Route: 048
     Dates: start: 20050101, end: 20080818
  3. DIOVAN HCT [Interacting]
     Indication: HYPERTENSION
     Dosage: 1DF= 160MG VALSARTAN + 25MG HCT
     Route: 048
     Dates: start: 20020101, end: 20080818
  4. TORASEMIDE [Interacting]
     Indication: HYPERTENSION
     Route: 048
     Dates: start: 20020101
  5. EZETIMIBE W/SIMVASTATIN [Concomitant]
     Indication: HYPERLIPIDAEMIA
     Dosage: 1DF= 10MG  EZETIMIB + 20MG SIMVASTATIN
     Route: 048
     Dates: start: 20070101, end: 20080818
  6. AMLODIPINE [Concomitant]
     Indication: HYPERTENSION
     Route: 048
     Dates: start: 20000101, end: 20080818
  7. DIGITOXIN [Concomitant]
     Indication: ATRIAL FIBRILLATION
     Route: 048
     Dates: start: 20050101, end: 20080818
  8. METOPROLOL [Concomitant]
     Indication: ATRIAL FIBRILLATION
     Route: 048
     Dates: start: 20050101, end: 20080818
  9. PANTOZOL [Concomitant]
     Indication: GASTRITIS HAEMORRHAGIC
     Route: 048
     Dates: start: 20080702

REACTIONS (2)
  - DRUG INTERACTION [None]
  - RENAL FAILURE ACUTE [None]
